FAERS Safety Report 16413385 (Version 1)
Quarter: 2019Q2

REPORT INFORMATION
  Report Type: Spontaneous
  Country: GB (occurrence: GB)
  Receive Date: 20190611
  Receipt Date: 20190611
  Transmission Date: 20190711
  Serious: Yes (Other)
  Sender: FDA-Public Use
  Company Number: GB-TEVA-2019-GB-1060808

PATIENT
  Age: 22 Year
  Sex: Female
  Weight: 107 kg

DRUGS (7)
  1. SCOPODERM [Concomitant]
     Active Substance: SCOPOLAMINE
     Dosage: APPLY
     Dates: start: 20180131
  2. RHINOCORT [Concomitant]
     Active Substance: BUDESONIDE
     Dosage: 2 DOSAGE FORMS DAILY; IN EACH NOSTRIL
     Route: 045
     Dates: start: 20180307
  3. LEVETIRACETAM. [Concomitant]
     Active Substance: LEVETIRACETAM
     Dosage: 12 ML DAILY;
     Dates: start: 20180131
  4. LACTULOSE. [Concomitant]
     Active Substance: LACTULOSE
     Indication: CONSTIPATION
     Dosage: USE AS DIRECTED TO PREVENT CONSTIPATION
     Dates: start: 20190325
  5. PARACETAMOL [Concomitant]
     Active Substance: ACETAMINOPHEN
     Dosage: 20ML (1000MG) EVERY 4-6 HOURS, UP TO FOUR TIMES...
     Dates: start: 20190424, end: 20190429
  6. BECLOMETASONE [Suspect]
     Active Substance: BECLOMETHASONE DIPROPIONATE
     Dosage: 4 DOSAGE FORMS DAILY; INTO EACH NOSTRIL
     Route: 045
     Dates: start: 20190424
  7. LAMOTRIGINE. [Concomitant]
     Active Substance: LAMOTRIGINE
     Dosage: 2 TIMES TWICE DAILY
     Dates: start: 20180201

REACTIONS (1)
  - Seizure [Not Recovered/Not Resolved]

NARRATIVE: CASE EVENT DATE: 20190503
